FAERS Safety Report 4884370-6 (Version None)
Quarter: 2006Q1

REPORT INFORMATION
  Report Type: 
  Country: None (occurrence: None)
  Receive Date: 20060117
  Receipt Date: 20060117
  Transmission Date: 20060701
  Serious: Yes (Other)
  Sender: FDA-Public Use
  Company Number: None

PATIENT
  Age: 61 Year
  Sex: Male
  Weight: 81.6475 kg

DRUGS (6)
  1. BYETTA [Suspect]
     Indication: DIABETES MELLITUS
     Dosage: 10 MCG  SUBCU BID
     Dates: start: 20060110, end: 20060116
  2. LISINOPRIL [Concomitant]
  3. ZETIA [Concomitant]
  4. TRICOR [Concomitant]
  5. AVANDAMET [Concomitant]
  6. LANTUS [Concomitant]

REACTIONS (7)
  - ABDOMINAL PAIN [None]
  - EYE SWELLING [None]
  - MYALGIA [None]
  - NASAL OEDEMA [None]
  - NAUSEA [None]
  - SINUS CONGESTION [None]
  - SWELLING FACE [None]
